FAERS Safety Report 8884422 (Version 1)
Quarter: 2012Q4

REPORT INFORMATION
  Report Type: 
  Country: FR (occurrence: FR)
  Receive Date: 20121104
  Receipt Date: 20121104
  Transmission Date: 20130627
  Serious: Yes (Other)
  Sender: FDA-Public Use
  Company Number: FR-SANOFI-AVENTIS-2012SA078169

PATIENT
  Age: 75 Year
  Sex: Female

DRUGS (2)
  1. LOVENOX [Suspect]
     Indication: ANTICOAGULANT THERAPY
     Route: 058
     Dates: start: 201210, end: 20121015
  2. VIT K ANTAGONISTS [Concomitant]
     Indication: ANTICOAGULANT THERAPY
     Route: 048

REACTIONS (1)
  - Angioedema [Recovered/Resolved]
